FAERS Safety Report 11791842 (Version 1)
Quarter: 2015Q4

REPORT INFORMATION
  Report Type: Report from Study
  Country: US (occurrence: US)
  Receive Date: 20151201
  Receipt Date: 20151201
  Transmission Date: 20160305
  Serious: Yes (Hospitalization, Other)
  Sender: FDA-Public Use
  Company Number: US-BAYER-2014-064680

PATIENT
  Age: 26 Year
  Sex: Female
  Weight: 65.76 kg

DRUGS (10)
  1. IUD NOS [Concomitant]
     Active Substance: COPPER OR LEVONORGESTREL
  2. MACITENTAN [Concomitant]
     Active Substance: MACITENTAN
  3. ADEMPAS [Suspect]
     Active Substance: RIOCIGUAT
     Indication: PULMONARY ARTERIAL HYPERTENSION
     Dosage: 1 MG, TID
     Route: 048
  4. ADEMPAS [Suspect]
     Active Substance: RIOCIGUAT
     Indication: PULMONARY ARTERIAL HYPERTENSION
     Dosage: 1 MG, TID
     Route: 048
  5. FLOLAN [Suspect]
     Active Substance: EPOPROSTENOL SODIUM
  6. COUMADIN [Concomitant]
     Active Substance: WARFARIN SODIUM
  7. FLOLAN [EPOPROSTENOL SODIUM] [Concomitant]
  8. ADEMPAS [Suspect]
     Active Substance: RIOCIGUAT
     Indication: PULMONARY ARTERIAL HYPERTENSION
     Dosage: 1 MG, TID (LAST SHIPPED 03-AUG-2015)
     Route: 048
  9. ADEMPAS [Suspect]
     Active Substance: RIOCIGUAT
     Indication: PULMONARY ARTERIAL HYPERTENSION
     Dosage: 1.5 MG, TID
     Route: 048
     Dates: start: 20140213
  10. ADEMPAS [Suspect]
     Active Substance: RIOCIGUAT
     Indication: PULMONARY ARTERIAL HYPERTENSION
     Dosage: UNK
     Dates: start: 20140210

REACTIONS (15)
  - Device leakage [Unknown]
  - Palpitations [Unknown]
  - Abdominal discomfort [None]
  - Nasopharyngitis [Unknown]
  - Dizziness [Unknown]
  - Nasal congestion [Unknown]
  - Device connection issue [Unknown]
  - Hospitalisation [None]
  - Headache [Unknown]
  - Nausea [None]
  - Catheter site infection [Not Recovered/Not Resolved]
  - Tooth disorder [None]
  - Diarrhoea [None]
  - Inappropriate schedule of drug administration [None]
  - Drug dose omission [None]

NARRATIVE: CASE EVENT DATE: 201505
